FAERS Safety Report 24715006 (Version 4)
Quarter: 2025Q3

REPORT INFORMATION
  Report Type: Spontaneous
  Country: JP (occurrence: JP)
  Receive Date: 20241210
  Receipt Date: 20250716
  Transmission Date: 20251020
  Serious: Yes (Other)
  Sender: ALEXION PHARMACEUTICALS
  Company Number: JP-ASTRAZENECA-240136920_011620_P_1

PATIENT
  Age: 46 Year
  Sex: Female
  Weight: 52 kg

DRUGS (18)
  1. LYNPARZA [Suspect]
     Active Substance: OLAPARIB
     Indication: Ovarian cancer
  2. LYNPARZA [Suspect]
     Active Substance: OLAPARIB
     Dosage: 600 MILLIGRAM, BID
     Dates: start: 20230207, end: 20230328
  3. LYNPARZA [Suspect]
     Active Substance: OLAPARIB
     Dates: start: 20230502, end: 20230808
  4. LYNPARZA [Suspect]
     Active Substance: OLAPARIB
     Dates: start: 20230913, end: 20240612
  5. LYNPARZA [Suspect]
     Active Substance: OLAPARIB
  6. AVASTIN [Suspect]
     Active Substance: BEVACIZUMAB
     Indication: Ovarian cancer
     Dates: start: 20221027, end: 20230717
  7. PRIMPERAN [Concomitant]
     Active Substance: METOCLOPRAMIDE HYDROCHLORIDE
     Indication: Prophylaxis
  8. PRIMPERAN [Concomitant]
     Active Substance: METOCLOPRAMIDE HYDROCHLORIDE
  9. PRIMPERAN [Concomitant]
     Active Substance: METOCLOPRAMIDE HYDROCHLORIDE
  10. MAGNESIUM OXIDE [Concomitant]
     Active Substance: MAGNESIUM OXIDE
     Indication: Constipation
     Dates: start: 20220729
  11. HERBALS [Concomitant]
     Active Substance: HERBALS
     Indication: Hot flush
     Dates: start: 20220802
  12. TU-100 [Concomitant]
     Active Substance: ASIAN GINSENG\GINGER\ZANTHOXYLUM PIPERITUM FRUIT PULP
     Indication: Constipation
     Dates: start: 20220729
  13. LOXOPROFEN SODIUM [Concomitant]
     Active Substance: LOXOPROFEN SODIUM
     Indication: Procedural pain
     Dates: start: 20220729
  14. REBAMIPIDE [Concomitant]
     Active Substance: REBAMIPIDE
     Indication: Prophylaxis against gastrointestinal ulcer
     Dates: start: 20220731
  15. HERBALS [Concomitant]
     Active Substance: HERBALS
     Indication: Peripheral nerve lesion
     Dates: start: 20221206
  16. HERBALS [Concomitant]
     Active Substance: HERBALS
     Indication: Neuropathy peripheral
  17. NOVAMIN [Concomitant]
     Indication: Nausea
     Dates: start: 20230214
  18. LORAZEPAM [Concomitant]
     Active Substance: LORAZEPAM
     Indication: Nausea
     Dates: start: 20230214

REACTIONS (8)
  - Anaemia [Recovered/Resolved]
  - Neutrophil count decreased [Recovered/Resolved]
  - Platelet count decreased [Recovered/Resolved]
  - Hepatic function abnormal [Recovered/Resolved]
  - COVID-19 [Recovered/Resolved]
  - Pyrexia [Recovered/Resolved]
  - Renal impairment [Recovered/Resolved]
  - Nausea [Recovered/Resolved]

NARRATIVE: CASE EVENT DATE: 20230214
